FAERS Safety Report 10006335 (Version 1)
Quarter: 2014Q1

REPORT INFORMATION
  Report Type: Spontaneous
  Country: US (occurrence: US)
  Receive Date: 20140313
  Receipt Date: 20140313
  Transmission Date: 20141002
  Serious: No
  Sender: FDA-Public Use
  Company Number: US-BAYER-2014-038300

PATIENT
  Age: 31 Year
  Sex: Female
  Weight: 55.33 kg

DRUGS (1)
  1. ALEVE TABLET [Suspect]
     Indication: TOOTHACHE
     Dosage: 1 DF, UNK
     Route: 048

REACTIONS (1)
  - Inappropriate schedule of drug administration [None]
